FAERS Safety Report 20140546 (Version 1)
Quarter: 2021Q4

REPORT INFORMATION
  Report Type: Spontaneous
  Country: US (occurrence: None)
  Receive Date: 20211202
  Receipt Date: 20211202
  Transmission Date: 20220303
  Serious: No
  Sender: FDA-Public Use
  Company Number: None

PATIENT
  Age: 69 Year
  Sex: Male
  Weight: 83.91 kg

DRUGS (1)
  1. TREMFYA [Suspect]
     Active Substance: GUSELKUMAB
     Indication: Psoriasis
     Dosage: FREQUENCY : ?INJECT 100MG SUBCUTANIOSLY ON WEEK 0 AND WEEK 4 AS DIRECTED;?
     Route: 058
     Dates: start: 201902

REACTIONS (1)
  - Therapy interrupted [None]
